FAERS Safety Report 7501184-9 (Version None)
Quarter: 2011Q2

REPORT INFORMATION
  Report Type: 
  Country: None (occurrence: None)
  Receive Date: 20110524
  Receipt Date: 20100713
  Transmission Date: 20111010
  Serious: No
  Sender: FDA-Public Use
  Company Number: US-NOVEN-ALL1-2010-03456

PATIENT

DRUGS (3)
  1. FLUORIDE                           /00168201/ [Concomitant]
     Dosage: UNK, AS REQ'D
     Route: 048
  2. DAYTRANA [Suspect]
     Dosage: 10 MG, 1X/DAY:QD
     Route: 062
     Dates: start: 20100614
  3. VITAMIN C                          /00008001/ [Concomitant]
     Dosage: UNK, AS REQ'D
     Route: 048

REACTIONS (3)
  - PRODUCT QUALITY ISSUE [None]
  - DRUG EFFECT DECREASED [None]
  - OFF LABEL USE [None]
